FAERS Safety Report 6891404-6 (Version None)
Quarter: 2010Q3

REPORT INFORMATION
  Report Type: 
  Country: None (occurrence: None)
  Receive Date: 20100731
  Receipt Date: 20040827
  Transmission Date: 20110219
  Serious: Yes (Other)
  Sender: FDA-Public Use
  Company Number: US-PFIZER INC-2004042397

PATIENT
  Sex: Female
  Weight: 69.9 kg

DRUGS (9)
  1. NEURONTIN [Suspect]
     Indication: NYSTAGMUS
  2. ZOLOFT [Suspect]
     Dates: start: 20030901
  3. ZYRTEC [Concomitant]
     Route: 065
  4. ACETYLSALICYLIC ACID SRT [Concomitant]
     Route: 065
  5. CALCIUM [Concomitant]
     Route: 065
  6. PRILOSEC [Concomitant]
     Route: 065
  7. ADVAIR DISKUS 100/50 [Concomitant]
     Route: 065
  8. RHINOCORT [Concomitant]
     Route: 065
  9. SOMA [Concomitant]
     Route: 065

REACTIONS (3)
  - BLOOD CHOLESTEROL INCREASED [None]
  - HALLUCINATION, VISUAL [None]
  - VITREOUS FLOATERS [None]
